FAERS Safety Report 7935279-2 (Version None)
Quarter: 2011Q4

REPORT INFORMATION
  Report Type: 
  Country: None (occurrence: None)
  Receive Date: 20111122
  Receipt Date: 20111114
  Transmission Date: 20120403
  Serious: Yes (Hospitalization, Other)
  Sender: FDA-Public Use
  Company Number: US-CELGENEUS-163-21880-11111365

PATIENT
  Sex: Male

DRUGS (14)
  1. CRESTOR [Concomitant]
     Dosage: 20 MILLIGRAM
     Route: 048
     Dates: start: 20110913
  2. METOPROLOL TARTRATE [Concomitant]
     Dosage: 25 MILLIGRAM
     Route: 048
     Dates: start: 20110913
  3. TRANSFUSION [Concomitant]
     Route: 041
     Dates: start: 20111101
  4. PENTOXIFYLLINE [Concomitant]
     Dosage: 400 MILLIGRAM
     Route: 048
     Dates: start: 20110913
  5. TAMSULOSIN HCL [Concomitant]
     Dosage: .4 MILLIGRAM
     Route: 048
     Dates: start: 20110913
  6. PROCHLORPERAZINE [Concomitant]
     Dosage: 10 MILLIGRAM
     Route: 048
     Dates: start: 20110913
  7. NEXIUM [Concomitant]
     Dosage: 40 MILLIGRAM
     Route: 048
     Dates: start: 20110913
  8. REVLIMID [Suspect]
     Indication: AMYLOIDOSIS
  9. SULFAMETHOXAZOLE AND TRIMETHOPRIM [Concomitant]
     Dosage: 400-80MG
     Route: 048
     Dates: start: 20110913
  10. POTASSIUM [Concomitant]
     Dosage: 75 MILLIGRAM
     Route: 048
     Dates: start: 20110913
  11. REVLIMID [Suspect]
     Indication: MULTIPLE MYELOMA
     Dosage: 25 MILLIGRAM
     Route: 048
     Dates: start: 20110914, end: 20111102
  12. ACYCLOVIR [Concomitant]
     Dosage: 400 MILLIGRAM
     Route: 048
     Dates: start: 20110913
  13. FUROSEMIDE [Concomitant]
     Dosage: 20 MILLIGRAM
     Route: 048
     Dates: start: 20110913
  14. ASPIRIN [Concomitant]
     Dosage: 81 MILLIGRAM
     Route: 048
     Dates: start: 20110913

REACTIONS (4)
  - FULL BLOOD COUNT DECREASED [None]
  - AMYLOIDOSIS [None]
  - LOCALISED INTRAABDOMINAL FLUID COLLECTION [None]
  - HAEMORRHAGE [None]
